FAERS Safety Report 10818309 (Version 1)
Quarter: 2015Q1

REPORT INFORMATION
  Report Type: Spontaneous
  Country: DE (occurrence: DE)
  Receive Date: 20150218
  Receipt Date: 20150218
  Transmission Date: 20150721
  Serious: Yes (Other)
  Sender: FDA-Public Use
  Company Number: DE-PFIZER INC-2015060212

PATIENT

DRUGS (1)
  1. ZELDOX [Suspect]
     Active Substance: ZIPRASIDONE

REACTIONS (3)
  - Pharyngeal oedema [Unknown]
  - Dysphagia [Unknown]
  - Tonsillar disorder [Unknown]
